FAERS Safety Report 19824402 (Version 1)
Quarter: 2021Q3

REPORT INFORMATION
  Report Type: Spontaneous
  Country: DE (occurrence: DE)
  Receive Date: 20210913
  Receipt Date: 20210913
  Transmission Date: 20211014
  Serious: Yes (Death, Hospitalization)
  Sender: FDA-Public Use
  Company Number: DE-ASTRAZENECA-2021A711034

PATIENT
  Age: 67 Year
  Sex: Female
  Weight: 53 kg

DRUGS (3)
  1. BUPRENORPHINE. [Concomitant]
     Active Substance: BUPRENORPHINE
     Dosage: 0.2 MG, BEDARF
  2. OLAPARIB. [Suspect]
     Active Substance: OLAPARIB
     Dosage: UNKNOWN
     Route: 065
  3. METAMIZOL [Concomitant]
     Active Substance: METAMIZOLE SODIUM
     Dosage: 1 G, 1?1?1?1

REACTIONS (9)
  - General physical health deterioration [Unknown]
  - Anaemia [Unknown]
  - Dehydration [Unknown]
  - Condition aggravated [Unknown]
  - Vomiting [Unknown]
  - Dyspnoea [Unknown]
  - Ovarian cancer [Unknown]
  - Systemic infection [Unknown]
  - Abdominal pain [Unknown]
